FAERS Safety Report 8407649-X (Version None)
Quarter: 2012Q2

REPORT INFORMATION
  Report Type: 
  Country: None (occurrence: None)
  Receive Date: 20120604
  Receipt Date: 20120530
  Transmission Date: 20120825
  Serious: Yes (Other)
  Sender: FDA-Public Use
  Company Number: US-ABBOTT-12P-163-0941586-00

PATIENT
  Sex: Male
  Weight: 78.996 kg

DRUGS (15)
  1. ZOCOR [Concomitant]
     Indication: BLOOD CHOLESTEROL INCREASED
  2. MEDICATION FOR OVERACTIVE BLADDER [Concomitant]
     Indication: HYPERTONIC BLADDER
  3. LOSARTAN POTASSIUM [Concomitant]
     Indication: HYPERTENSION
  4. CALCIUM WITH VITAMIN D [Concomitant]
     Indication: PRODUCT USED FOR UNKNOWN INDICATION
  5. LEVOTHYROXINE SODIUM [Concomitant]
     Indication: PRODUCT USED FOR UNKNOWN INDICATION
  6. TERAZOSIN HCL [Concomitant]
     Indication: PROSTATOMEGALY
  7. METOPROLOL TARTRATE [Concomitant]
     Indication: HEART RATE ABNORMAL
  8. VITAMIN B COMPLEX CAP [Concomitant]
     Indication: PRODUCT USED FOR UNKNOWN INDICATION
  9. VITAMIN D [Concomitant]
     Indication: PRODUCT USED FOR UNKNOWN INDICATION
  10. LUXIQ [Concomitant]
     Indication: PSORIASIS
     Dosage: FOAM, AS NEEDED
  11. ANDROGEL [Suspect]
     Indication: BLOOD TESTOSTERONE DECREASED
     Dosage: 1 PACKET DAILY
     Route: 061
     Dates: start: 20040101
  12. CLARINEX [Concomitant]
     Indication: HYPERSENSITIVITY
  13. MULTI-VITAMINS [Concomitant]
     Indication: PRODUCT USED FOR UNKNOWN INDICATION
  14. ASPIRIN [Concomitant]
     Indication: PRODUCT USED FOR UNKNOWN INDICATION
  15. CITRICAL FIBER [Concomitant]
     Indication: PRODUCT USED FOR UNKNOWN INDICATION

REACTIONS (3)
  - PAIN [None]
  - AORTIC RUPTURE [None]
  - BLOOD TESTOSTERONE DECREASED [None]
